FAERS Safety Report 6704021-5 (Version None)
Quarter: 2010Q2

REPORT INFORMATION
  Report Type: 
  Country: None (occurrence: None)
  Receive Date: 20100430
  Receipt Date: 20100420
  Transmission Date: 20101027
  Serious: Yes (Death, Hospitalization)
  Sender: FDA-Public Use
  Company Number: FR-WYE-H14733010

PATIENT
  Age: 55 Year
  Sex: Male

DRUGS (3)
  1. CORDARONE [Suspect]
     Indication: TACHYCARDIA
     Route: 048
     Dates: start: 20091211, end: 20091221
  2. CORDARONE [Suspect]
     Route: 048
     Dates: start: 20100101, end: 20100107
  3. CORDARONE [Suspect]
     Route: 048
     Dates: start: 20100128, end: 20100201

REACTIONS (3)
  - ACUTE RESPIRATORY DISTRESS SYNDROME [None]
  - INTERSTITIAL LUNG DISEASE [None]
  - SEPSIS [None]
